FAERS Safety Report 5362629-6 (Version None)
Quarter: 2007Q2

REPORT INFORMATION
  Report Type: 
  Country: None (occurrence: None)
  Receive Date: 20070619
  Receipt Date: 20070607
  Transmission Date: 20071010
  Serious: Yes (Life-Threatening, Other)
  Sender: FDA-Public Use
  Company Number: IN-PFIZER INC-2005066982

PATIENT
  Age: 49 Year
  Sex: Male

DRUGS (1)
  1. AMLOGARD [Suspect]
     Indication: HYPERTENSION
     Route: 048
     Dates: start: 20050301, end: 20050301

REACTIONS (10)
  - BLOOD PRESSURE INCREASED [None]
  - CHEST DISCOMFORT [None]
  - CONSTIPATION [None]
  - DUODENOGASTRIC REFLUX [None]
  - FACE OEDEMA [None]
  - FLUID RETENTION [None]
  - LIBIDO DECREASED [None]
  - POLYURIA [None]
  - PROTEINURIA [None]
  - RENAL FAILURE [None]
